FAERS Safety Report 8548753-5 (Version None)
Quarter: 2012Q3

REPORT INFORMATION
  Report Type: 
  Country: None (occurrence: None)
  Receive Date: 20120720
  Receipt Date: 20120720
  Transmission Date: 20120928
  Serious: Yes (Life-Threatening, Hospitalization)
  Sender: FDA-Public Use
  Company Number: None

PATIENT
  Age: 26 Year
  Sex: Female
  Weight: 86.1834 kg

DRUGS (3)
  1. AMBIEN [Suspect]
     Indication: INSOMNIA
     Dosage: 10MG ONCE DAILY PO
     Route: 048
  2. LATUDA [Concomitant]
  3. PRISTIQ [Concomitant]

REACTIONS (5)
  - CONVERSION DISORDER [None]
  - SUICIDAL IDEATION [None]
  - CRYING [None]
  - CATATONIA [None]
  - HALLUCINATION [None]
